FAERS Safety Report 20554832 (Version 1)
Quarter: 2022Q1

REPORT INFORMATION
  Report Type: Spontaneous
  Country: US (occurrence: US)
  Receive Date: 20220304
  Receipt Date: 20220304
  Transmission Date: 20220423
  Serious: Yes (Hospitalization, Other)
  Sender: FDA-Public Use
  Company Number: US-009507513-2203USA001643

PATIENT
  Sex: Male
  Weight: 99.79 kg

DRUGS (18)
  1. KEYTRUDA [Suspect]
     Active Substance: PEMBROLIZUMAB
     Indication: Product used for unknown indication
     Route: 042
  2. LENVATINIB MESYLATE [Suspect]
     Active Substance: LENVATINIB MESYLATE
     Indication: Renal cancer
     Dosage: 10 MILLIGRAM 1D
     Route: 048
     Dates: start: 202106, end: 2021
  3. GABAPENTIN [Concomitant]
     Active Substance: GABAPENTIN
  4. OMEPRAZOLE [Concomitant]
     Active Substance: OMEPRAZOLE
  5. OXYCODONE AND ACETAMINOPHEN [Concomitant]
     Active Substance: ACETAMINOPHEN\OXYCODONE HYDROCHLORIDE
  6. BYSTOLIC [Concomitant]
     Active Substance: NEBIVOLOL HYDROCHLORIDE
  7. DOXAZOSIN MESYLATE [Concomitant]
     Active Substance: DOXAZOSIN MESYLATE
  8. ALLOPURINOL [Concomitant]
     Active Substance: ALLOPURINOL
  9. LASIX [Concomitant]
     Active Substance: FUROSEMIDE
  10. AMLODIPINE BESYLATE [Concomitant]
     Active Substance: AMLODIPINE BESYLATE
  11. OMEGA-3 FATTY ACIDS [Concomitant]
     Active Substance: OMEGA-3 FATTY ACIDS
  12. VITAMINS NOS [Concomitant]
     Active Substance: VITAMINS
  13. IRON [Concomitant]
     Active Substance: IRON
  14. ELIQUIS [Concomitant]
     Active Substance: APIXABAN
  15. LISINOPRIL [Concomitant]
     Active Substance: LISINOPRIL
  16. VP VITE RX [Concomitant]
  17. FINASTERIDE [Concomitant]
     Active Substance: FINASTERIDE
  18. XGEVA [Concomitant]
     Active Substance: DENOSUMAB

REACTIONS (10)
  - Renal impairment [Unknown]
  - Pain in extremity [Recovered/Resolved]
  - Skin discolouration [Recovered/Resolved]
  - Blood pressure increased [Unknown]
  - Chest pain [Unknown]
  - Blood calcium decreased [Unknown]
  - Fatigue [Unknown]
  - Rhinorrhoea [Unknown]
  - Pyrexia [Unknown]
  - Somnolence [Unknown]

NARRATIVE: CASE EVENT DATE: 20210101
